FAERS Safety Report 24096628 (Version 1)
Quarter: 2024Q3

REPORT INFORMATION
  Report Type: Spontaneous
  Country: US (occurrence: US)
  Receive Date: 20240716
  Receipt Date: 20240716
  Transmission Date: 20241016
  Serious: Yes (Other)
  Sender: PFIZER
  Company Number: US-PFIZER INC-202400213624

PATIENT
  Age: 53 Year
  Sex: Male

DRUGS (1)
  1. NURTEC ODT [Suspect]
     Active Substance: RIMEGEPANT SULFATE
     Dosage: UNK
     Dates: start: 20240712

REACTIONS (8)
  - Choking [Unknown]
  - Throat irritation [Unknown]
  - Productive cough [Unknown]
  - Disorientation [Unknown]
  - Sedation [Unknown]
  - Feeling abnormal [Unknown]
  - Impaired driving ability [Unknown]
  - Impaired ability to use machinery [Unknown]

NARRATIVE: CASE EVENT DATE: 20240712
